FAERS Safety Report 4874931-2 (Version None)
Quarter: 2006Q1

REPORT INFORMATION
  Report Type: 
  Country: None (occurrence: None)
  Receive Date: 20060109
  Receipt Date: 20041013
  Transmission Date: 20060701
  Serious: Yes (Other)
  Sender: FDA-Public Use
  Company Number: US-SP-2004-03376

PATIENT
  Age: 38 Year
  Sex: Male

DRUGS (3)
  1. TUBERSOL [Suspect]
     Route: 030
     Dates: start: 20040804
  2. TUBERSOL [Suspect]
     Route: 030
     Dates: start: 20040804
  3. DIPHTHERIA AND TETANUS TOXOIDS [Concomitant]
     Indication: IMMUNISATION

REACTIONS (22)
  - ALLODYNIA [None]
  - ASTHENIA [None]
  - BRACHIAL PLEXOPATHY [None]
  - BREAST PAIN [None]
  - BURNING SENSATION [None]
  - CHEST PAIN [None]
  - CONTUSION [None]
  - ELECTROMYOGRAM NORMAL [None]
  - GRIP STRENGTH DECREASED [None]
  - HYPERAESTHESIA [None]
  - HYPOAESTHESIA [None]
  - INJURY [None]
  - INSOMNIA [None]
  - MUSCULOSKELETAL DISCOMFORT [None]
  - NAIL GROWTH ABNORMAL [None]
  - NAUSEA [None]
  - OEDEMA PERIPHERAL [None]
  - PAIN IN EXTREMITY [None]
  - PARAESTHESIA [None]
  - SENSORY LOSS [None]
  - SKIN DISCOLOURATION [None]
  - WRONG DRUG ADMINISTERED [None]
